FAERS Safety Report 12644778 (Version 1)
Quarter: 2016Q3

REPORT INFORMATION
  Report Type: Spontaneous
  Country: US (occurrence: US)
  Receive Date: 20160811
  Receipt Date: 20160811
  Transmission Date: 20161109
  Serious: No
  Sender: FDA-Public Use
  Company Number: US-PFIZER INC-2016379369

PATIENT
  Sex: Male

DRUGS (1)
  1. SUTENT [Suspect]
     Active Substance: SUNITINIB MALATE
     Dosage: UNK, CYCLIC (4 WEEKS AND THEN HAVING 2 WEEKS OFF)

REACTIONS (3)
  - Fall [Unknown]
  - Oral mucosal blistering [Unknown]
  - Lip blister [Unknown]
